FAERS Safety Report 21280582 (Version 1)
Quarter: 2022Q3

REPORT INFORMATION
  Report Type: Spontaneous
  Country: US (occurrence: US)
  Receive Date: 20220901
  Receipt Date: 20220901
  Transmission Date: 20221027
  Serious: Yes (Life-Threatening)
  Sender: FDA-Public Use
  Company Number: US-PFIZER INC-PV202200049916

PATIENT
  Age: 57 Year
  Sex: Male

DRUGS (2)
  1. HEPARIN SODIUM [Suspect]
     Active Substance: HEPARIN SODIUM
     Indication: Fluid retention
     Dosage: UNK
  2. ALTEPLASE [Suspect]
     Active Substance: ALTEPLASE
     Indication: Fluid retention
     Dosage: UNK

REACTIONS (1)
  - Drug ineffective [Unknown]
